FAERS Safety Report 4421002-5 (Version None)
Quarter: 2004Q3

REPORT INFORMATION
  Report Type: 
  Country: None (occurrence: None)
  Receive Date: 20040803
  Receipt Date: 20040726
  Transmission Date: 20050211
  Serious: Yes (Hospitalization)
  Sender: FDA-Public Use
  Company Number: TPA2004A00914

PATIENT
  Age: 38 Year
  Sex: Female

DRUGS (11)
  1. ACTOS [Suspect]
     Indication: DIABETES MELLITUS NON-INSULIN-DEPENDENT
     Dosage: 45 MG, 1 IN 1 D, PER ORAL
     Route: 048
  2. METFORMIN HCL [Concomitant]
  3. GLYBURIDE [Concomitant]
  4. NPH INSULIN [Concomitant]
  5. REGULAR INSULIN (INSULIN /N/A/) [Concomitant]
  6. LISINOPRIL [Concomitant]
  7. NIFEDIPINE [Concomitant]
  8. ATENOLOL [Concomitant]
  9. ASPIRIN [Concomitant]
  10. FUROSEMIDE [Concomitant]
  11. POTASSIUM CHLORIDE [Concomitant]

REACTIONS (12)
  - ALANINE AMINOTRANSFERASE INCREASED [None]
  - ANOREXIA [None]
  - ASPARTATE AMINOTRANSFERASE INCREASED [None]
  - BLOOD ALKALINE PHOSPHATASE INCREASED [None]
  - BLOOD BILIRUBIN INCREASED [None]
  - DYSPNOEA EXACERBATED [None]
  - HEPATOTOXICITY [None]
  - HYPERGLYCAEMIA [None]
  - LACTIC ACIDOSIS [None]
  - ORTHOPNOEA [None]
  - TREATMENT NONCOMPLIANCE [None]
  - URINE KETONE BODY PRESENT [None]
